FAERS Safety Report 4937423-8 (Version None)
Quarter: 2006Q1

REPORT INFORMATION
  Report Type: 
  Country: None (occurrence: None)
  Receive Date: 20060309
  Receipt Date: 20060306
  Transmission Date: 20060701
  Serious: Yes (Life-Threatening)
  Sender: FDA-Public Use
  Company Number: PHBS2006ES03434

PATIENT
  Age: 72 Year
  Sex: Female

DRUGS (6)
  1. RIVOTRIL [Concomitant]
     Indication: CONVULSION
     Dosage: 1.5 MG/D
     Route: 048
  2. CARDYL [Concomitant]
     Indication: HYPERLIPIDAEMIA
     Dosage: 10 MG/D
  3. OMEPRAZOLE [Concomitant]
     Dosage: 20 MG/D
  4. ETUMINE [Concomitant]
     Indication: PSYCHOTIC DISORDER
     Dosage: 20 MG/D
     Route: 048
  5. TRILEPTAL [Suspect]
     Indication: CONVULSION
     Dosage: 300 MG/D
     Route: 065
     Dates: start: 20051203
  6. TRILEPTAL [Suspect]
     Dosage: 600 MG/D
     Route: 065

REACTIONS (4)
  - ATRIOVENTRICULAR BLOCK COMPLETE [None]
  - HYPONATRAEMIA [None]
  - SUPRAVENTRICULAR EXTRASYSTOLES [None]
  - VENTRICULAR EXTRASYSTOLES [None]
